FAERS Safety Report 17226299 (Version 1)
Quarter: 2020Q1

REPORT INFORMATION
  Report Type: Spontaneous
  Country: US (occurrence: US)
  Receive Date: 20200102
  Receipt Date: 20200102
  Transmission Date: 20200409
  Serious: Yes (Other)
  Sender: FDA-Public Use
  Company Number: US-FOUNDATIONCONSUMERHC-2019-US-020137

PATIENT
  Age: 19 Year
  Sex: Female
  Weight: 66.23 kg

DRUGS (2)
  1. ALBUTEROL INHALER [Concomitant]
     Active Substance: ALBUTEROL
  2. PLAN B ONE-STEP [Suspect]
     Active Substance: LEVONORGESTREL
     Indication: POST COITAL CONTRACEPTION
     Dosage: 1.5 MG X 1 DOSE
     Route: 048
     Dates: start: 20190912, end: 20190912

REACTIONS (3)
  - Pregnancy after post coital contraception [Unknown]
  - Vaginal haemorrhage [Recovered/Resolved]
  - Drug ineffective [Unknown]

NARRATIVE: CASE EVENT DATE: 20190912
